FAERS Safety Report 5716395-2 (Version None)
Quarter: 2008Q2

REPORT INFORMATION
  Report Type: 
  Country: None (occurrence: None)
  Receive Date: 20080424
  Receipt Date: 20080417
  Transmission Date: 20081010
  Serious: Yes (Other)
  Sender: FDA-Public Use
  Company Number: PHHY2008BR05946

PATIENT
  Sex: Female

DRUGS (3)
  1. ZYBAN [Concomitant]
     Indication: DEPRESSION
     Dates: start: 20050101
  2. RIVOTRIL [Concomitant]
     Indication: ANXIETY
     Dosage: QUARTER OF TABLET
     Route: 048
  3. RITALIN LA [Suspect]
     Indication: ATTENTION DEFICIT/HYPERACTIVITY DISORDER
     Dosage: 40 MG
     Route: 048
     Dates: start: 20050101

REACTIONS (5)
  - AGITATION [None]
  - HYPERHIDROSIS [None]
  - NERVOUSNESS [None]
  - PANIC DISORDER [None]
  - VISUAL DISTURBANCE [None]
